FAERS Safety Report 4492849-4 (Version None)
Quarter: 2004Q4

REPORT INFORMATION
  Report Type: 
  Country: None (occurrence: None)
  Receive Date: 20041102
  Receipt Date: 20041102
  Transmission Date: 20050328
  Serious: Yes (Hospitalization)
  Sender: FDA-Public Use
  Company Number: None

PATIENT
  Age: 34 Year
  Sex: Female
  Weight: 89.3586 kg

DRUGS (1)
  1. SARNA CREAM [Suspect]
     Indication: RASH
     Dosage: AS DIRECTED TOPICAL
     Route: 061
     Dates: start: 20040721, end: 20040721

REACTIONS (1)
  - APPLICATION SITE BURNING [None]
